FAERS Safety Report 21898224 (Version 2)
Quarter: 2023Q1

REPORT INFORMATION
  Report Type: Spontaneous
  Country: US (occurrence: US)
  Receive Date: 20230123
  Receipt Date: 20230213
  Transmission Date: 20230417
  Serious: Yes (Hospitalization)
  Sender: FDA-Public Use
  Company Number: US-EIGER BIOPHARMACEUTICALS-EIG-2022-000019

PATIENT
  Age: 4 Year
  Sex: Male

DRUGS (2)
  1. ZOKINVY [Suspect]
     Active Substance: LONAFARNIB
     Indication: Progeria
     Dosage: 50 MILLIGRAM, QD
     Route: 048
     Dates: start: 20221110
  2. ZOKINVY [Suspect]
     Active Substance: LONAFARNIB
     Dosage: 50 MILLIGRAM, BID
     Route: 048
     Dates: start: 20221213

REACTIONS (7)
  - Surgery [Recovered/Resolved]
  - Bacterial infection [Unknown]
  - Dyschezia [Unknown]
  - Vomiting [Recovered/Resolved]
  - Pyrexia [Recovered/Resolved]
  - Diarrhoea [Recovered/Resolved]
  - Headache [Recovered/Resolved]

NARRATIVE: CASE EVENT DATE: 20230103
